FAERS Safety Report 4984146-5 (Version None)
Quarter: 2006Q2

REPORT INFORMATION
  Report Type: 
  Country: None (occurrence: None)
  Receive Date: 20060425
  Receipt Date: 20060425
  Transmission Date: 20061013
  Serious: Yes (Hospitalization)
  Sender: FDA-Public Use
  Company Number: None

PATIENT
  Age: 69 Year
  Sex: Male
  Weight: 57.6068 kg

DRUGS (3)
  1. STAVUDINE [Suspect]
     Dosage: 40 MG PO BID
     Route: 048
  2. DIDANOSINE [Suspect]
     Dosage: 400 MG PO QD
     Route: 048
  3. LAMIVUDINE [Suspect]
     Dosage: 150 MG PO BID
     Route: 048

REACTIONS (1)
  - LACTIC ACIDOSIS [None]
